FAERS Safety Report 7656011-6 (Version None)
Quarter: 2011Q3

REPORT INFORMATION
  Report Type: 
  Country: None (occurrence: None)
  Receive Date: 20110804
  Receipt Date: 20110725
  Transmission Date: 20111222
  Serious: Yes (Other)
  Sender: FDA-Public Use
  Company Number: US-ROCHE-748890

PATIENT
  Sex: Male
  Weight: 63.5 kg

DRUGS (3)
  1. ACCUTANE [Suspect]
     Route: 065
     Dates: end: 20050611
  2. ACCUTANE [Suspect]
     Route: 065
     Dates: start: 20040213, end: 20040701
  3. ACCUTANE [Suspect]
     Indication: ACNE
     Route: 065
     Dates: start: 20021029, end: 20030310

REACTIONS (5)
  - INFLAMMATORY BOWEL DISEASE [None]
  - RECTAL HAEMORRHAGE [None]
  - IRRITABLE BOWEL SYNDROME [None]
  - STEVENS-JOHNSON SYNDROME [None]
  - EMOTIONAL DISTRESS [None]
